FAERS Safety Report 24213908 (Version 1)
Quarter: 2024Q3

REPORT INFORMATION
  Report Type: Report from Study
  Country: US (occurrence: US)
  Receive Date: 20240815
  Receipt Date: 20240815
  Transmission Date: 20241017
  Serious: Yes (Life-Threatening, Hospitalization, Other)
  Sender: IOVANCE BIOTHERAPEUTICS
  Company Number: US-Clinigen Group PLC/ Clinigen Healthcare Ltd-US-CLGN-20-00187

PATIENT
  Age: 73 Year
  Sex: Female
  Weight: 95.24 kg

DRUGS (9)
  1. ALDESLEUKIN [Suspect]
     Active Substance: ALDESLEUKIN
     Indication: Cervix cancer metastatic
     Dosage: 62 INTERNATIONAL UNITS MILLIONS, BID
     Route: 042
     Dates: start: 20200325, end: 20200326
  2. PEMBROLIZUMAB [Suspect]
     Active Substance: PEMBROLIZUMAB
     Indication: Cervix cancer metastatic
     Dosage: 200 MILLIGRAM, 3W
     Route: 042
     Dates: start: 20200310, end: 20200407
  3. CYCLOPHOSPHAMIDE [Suspect]
     Active Substance: CYCLOPHOSPHAMIDE
     Indication: Cervix cancer metastatic
     Dosage: 6200 MILLIGRAM, QD
     Route: 042
     Dates: start: 20200317, end: 20200318
  4. FLUDARABINE [Suspect]
     Active Substance: FLUDARABINE PHOSPHATE
     Indication: Cervix cancer metastatic
     Dosage: 45 MILLIGRAM, QD
     Route: 042
     Dates: start: 20200319, end: 20200323
  5. AMLODIPINE [Concomitant]
     Active Substance: AMLODIPINE BESYLATE
     Indication: Hypertension
     Dosage: UNK UNK
     Route: 065
     Dates: start: 1980
  6. LISINOPRIL [Concomitant]
     Active Substance: LISINOPRIL
     Indication: Hypertension
     Dosage: UNK UNK
     Route: 065
     Dates: start: 1980
  7. FLUCONAZOLE [Concomitant]
     Active Substance: FLUCONAZOLE
     Indication: Product used for unknown indication
     Dosage: UNK UNK
     Route: 065
     Dates: start: 20200325
  8. BACTRIM [Concomitant]
     Active Substance: SULFAMETHOXAZOLE\TRIMETHOPRIM
     Indication: Product used for unknown indication
     Dosage: UNK UNK
     Dates: start: 20200407
  9. ACYCLOVIR [Concomitant]
     Active Substance: ACYCLOVIR
     Indication: Product used for unknown indication
     Dosage: UNK UNK
     Route: 065
     Dates: start: 20200327

REACTIONS (6)
  - Vision blurred [Not Recovered/Not Resolved]
  - Bacteraemia [Recovered/Resolved]
  - Respiratory failure [Recovered/Resolved with Sequelae]
  - Atrial fibrillation [Recovered/Resolved]
  - Colitis [Recovered/Resolved]
  - Myocarditis [Not Recovered/Not Resolved]

NARRATIVE: CASE EVENT DATE: 20200407
